FAERS Safety Report 5929976-8 (Version None)
Quarter: 2008Q4

REPORT INFORMATION
  Report Type: 
  Country: None (occurrence: None)
  Receive Date: 20081024
  Receipt Date: 20081013
  Transmission Date: 20090506
  Serious: Yes (Other)
  Sender: FDA-Public Use
  Company Number: US-PFIZER INC-2008077320

PATIENT
  Sex: Female
  Weight: 86.363 kg

DRUGS (5)
  1. DILANTIN [Suspect]
     Indication: ANEURYSM
     Dates: start: 19810101
  2. DILANTIN [Suspect]
  3. PHENOBARBITAL TAB [Concomitant]
  4. RANITIDINE [Concomitant]
  5. SIMVASTATIN [Concomitant]

REACTIONS (13)
  - ANOREXIA [None]
  - BLOOD TEST ABNORMAL [None]
  - CEREBROVASCULAR ACCIDENT [None]
  - CONVULSION [None]
  - DIABETES MELLITUS [None]
  - EXTRASYSTOLES [None]
  - FALL [None]
  - GINGIVAL BLEEDING [None]
  - HEART RATE INCREASED [None]
  - LIMB INJURY [None]
  - OEDEMA PERIPHERAL [None]
  - PAIN [None]
  - SWELLING [None]
